FAERS Safety Report 6662885-8 (Version None)
Quarter: 2010Q2

REPORT INFORMATION
  Report Type: 
  Country: None (occurrence: None)
  Receive Date: 20100401
  Receipt Date: 20100319
  Transmission Date: 20101027
  Serious: No
  Sender: FDA-Public Use
  Company Number: US-JNJFOC-20100306456

PATIENT
  Sex: Male
  Weight: 131.09 kg

DRUGS (6)
  1. DURAGESIC-100 [Suspect]
     Indication: NEURALGIA
     Dosage: NDC# 50458-0093-05
     Route: 062
  2. DURAGESIC-100 [Suspect]
     Indication: OSTEOARTHRITIS
     Dosage: NDC# 50458-0093-05
     Route: 062
  3. DURAGESIC-100 [Suspect]
     Indication: ARTHRITIS
     Dosage: NDC# 50458-0093-05
     Route: 062
  4. DURAGESIC-100 [Suspect]
     Indication: BACK PAIN
     Dosage: NDC# 50458-0093-05
     Route: 062
  5. ULTRAM [Concomitant]
     Indication: PAIN
     Route: 048
  6. MANY OTHER UNSPECIFIED MEDICATIONS [Concomitant]
     Indication: DRUG USE FOR UNKNOWN INDICATION
     Route: 065

REACTIONS (3)
  - DRUG INEFFECTIVE [None]
  - PRODUCT ADHESION ISSUE [None]
  - WRONG TECHNIQUE IN DRUG USAGE PROCESS [None]
